FAERS Safety Report 11363599 (Version 1)
Quarter: 2015Q3

REPORT INFORMATION
  Report Type: Spontaneous
  Country: GB (occurrence: GB)
  Receive Date: 20150811
  Receipt Date: 20150811
  Transmission Date: 20151125
  Serious: Yes (Hospitalization, Other)
  Sender: FDA-Public Use
  Company Number: GB-UCBSA-2015025484

PATIENT
  Sex: Female

DRUGS (1)
  1. CIMZIA [Suspect]
     Active Substance: CERTOLIZUMAB PEGOL
     Indication: RHEUMATOID ARTHRITIS
     Dosage: 400 MG, EV 2 WEEKS(QOW) (LOADING DOSE)
     Route: 058
     Dates: start: 20150601, end: 2015

REACTIONS (3)
  - Visual impairment [Unknown]
  - Sepsis [Unknown]
  - Confusional state [Unknown]

NARRATIVE: CASE EVENT DATE: 2015
